FAERS Safety Report 8315097-6 (Version None)
Quarter: 2012Q1

REPORT INFORMATION
  Report Type: 
  Country: None (occurrence: None)
  Receive Date: 20120315
  Receipt Date: 20110505
  Transmission Date: 20120608
  Serious: Yes (Other)
  Sender: FDA-Public Use
  Company Number: PHHY2011US36932

PATIENT
  Age: 49 Year
  Sex: Male
  Weight: 88.9 kg

DRUGS (3)
  1. GILENYA [Suspect]
     Indication: MULTIPLE SCLEROSIS
     Dosage: 0.5 MG, QD, ORAL
     Route: 048
     Dates: start: 20110420
  2. IBUPROFEN [Concomitant]
  3. VITAMIN D [Concomitant]

REACTIONS (1)
  - BRADYCARDIA [None]
